FAERS Safety Report 5259369-0 (Version None)
Quarter: 2007Q1

REPORT INFORMATION
  Report Type: 
  Country: None (occurrence: None)
  Receive Date: 20070305
  Receipt Date: 20070220
  Transmission Date: 20070707
  Serious: Yes (Hospitalization)
  Sender: FDA-Public Use
  Company Number: OSCN-NO-0608S-0254

PATIENT
  Age: 72 Year
  Sex: Female

DRUGS (10)
  1. OMNISCAN [Suspect]
     Indication: DRUG USE FOR UNKNOWN INDICATION
     Dosage: 50 ML, SINGLE DOSE, I.V.
     Route: 042
     Dates: start: 20050513, end: 20050513
  2. OMNISCAN [Suspect]
     Dosage: 50 ML, SINGLE DOSE, I.V.
     Route: 042
     Dates: start: 20050524, end: 20050524
  3. EPOETIN BETA (NEORECORMON) [Concomitant]
  4. METOPROLOL SUCCINATE (SELO-ZOK) [Concomitant]
  5. ALFACALCIDOL (ETALPHA) [Concomitant]
  6. SODIUM BICARBONATE (NATRON) [Concomitant]
  7. ZOCOR [Concomitant]
  8. INSULIN ASPART (NOVORAPID) [Concomitant]
  9. INSULIN HUMAN INJECTION, ISOPHANE (INSULATARD) [Concomitant]
  10. DILTIAZEM (CARDIZEM UNO) [Concomitant]

REACTIONS (1)
  - NEPHROGENIC FIBROSING DERMOPATHY [None]
